FAERS Safety Report 25662513 (Version 1)
Quarter: 2025Q3

REPORT INFORMATION
  Report Type: Spontaneous
  Country: US (occurrence: US)
  Receive Date: 20250810
  Receipt Date: 20250810
  Transmission Date: 20251020
  Serious: No
  Sender: BAUSCH AND LOMB
  Company Number: US-BAUSCHBL-2025BNL013742

PATIENT
  Age: 61 Year
  Sex: Female

DRUGS (4)
  1. XIIDRA [Suspect]
     Active Substance: LIFITEGRAST
     Indication: Dry eye
     Dosage: ADMINISTERING 1 DROP INTO EACH EYE TWICE DAILY
     Route: 047
     Dates: start: 202506
  2. XIIDRA [Suspect]
     Active Substance: LIFITEGRAST
     Dosage: DECREASED THE DOSE TO 1 DROP INTO EACH EYE ONCE DAILY IN THE EVENING
     Route: 047
     Dates: start: 202506
  3. CARBOXYMETHYLCELLULOSE [Concomitant]
     Active Substance: CARBOXYMETHYLCELLULOSE
     Indication: Product used for unknown indication
     Route: 065
  4. ARTIFICIAL TEARS [CARMELLOSE SODIUM] [Concomitant]
     Indication: Product used for unknown indication
     Route: 065

REACTIONS (7)
  - Eyelid margin crusting [Unknown]
  - Eye pain [Unknown]
  - Ocular hyperaemia [Unknown]
  - Eye discharge [Unknown]
  - Eye irritation [Unknown]
  - Vision blurred [Unknown]
  - Intentional product use issue [Unknown]

NARRATIVE: CASE EVENT DATE: 20250101
